FAERS Safety Report 7948153-2 (Version None)
Quarter: 2011Q4

REPORT INFORMATION
  Report Type: 
  Country: None (occurrence: None)
  Receive Date: 20111125
  Receipt Date: 20111108
  Transmission Date: 20120403
  Serious: Yes (Other)
  Sender: FDA-Public Use
  Company Number: FK201102664

PATIENT
  Age: 19 Month
  Sex: Female

DRUGS (7)
  1. ETOPOSIDE [Suspect]
     Indication: BRAIN NEOPLASM MALIGNANT
     Dosage: 2.5 MG/KG, 1 IN 1 D
  2. CISPLATIN [Suspect]
     Indication: BRAIN NEOPLASM MALIGNANT
     Dosage: 3.5 MG/KG
  3. THIOTEPA [Suspect]
     Indication: BRAIN NEOPLASM MALIGNANT
     Dosage: 10 MG/KG, 1 IN 1 D
  4. CARBOPLATIN [Suspect]
     Indication: BRAIN NEOPLASM MALIGNANT
     Dosage: 17 MG/KG, 1 IN 1 D
  5. VINCRISTINE [Suspect]
     Indication: BRAIN NEOPLASM MALIGNANT
     Dosage: 0.05 MG/KG, 1 IN 1 D
  6. CYCLOPHOSPHAMIDE [Suspect]
     Indication: BRAIN NEOPLASM MALIGNANT
     Dosage: 60 MG/KG, 1 IN 1 D
  7. METHOTREXATE [Suspect]
     Indication: BRAIN NEOPLASM MALIGNANT
     Dosage: 8000 MG/M2

REACTIONS (9)
  - EYELID PTOSIS [None]
  - LEUKOENCEPHALOPATHY [None]
  - SEPSIS [None]
  - NEUROLOGICAL DECOMPENSATION [None]
  - DEAFNESS [None]
  - STRABISMUS [None]
  - CENTRAL NERVOUS SYSTEM NECROSIS [None]
  - IMMUNOSUPPRESSION [None]
  - PAPILLOEDEMA [None]
